FAERS Safety Report 4388432-1 (Version None)
Quarter: 2004Q2

REPORT INFORMATION
  Report Type: 
  Country: None (occurrence: None)
  Receive Date: 20040625
  Receipt Date: 20040615
  Transmission Date: 20050107
  Serious: Yes (Other)
  Sender: FDA-Public Use
  Company Number: 2004-00334FE

PATIENT
  Age: 60 Year
  Sex: Male

DRUGS (2)
  1. PENTASA [Suspect]
     Indication: CROHN'S DISEASE
     Route: 048
     Dates: start: 20020101
  2. URSODEOXYCHOLIC ACID [Concomitant]

REACTIONS (1)
  - LUPUS-LIKE SYNDROME [None]
